FAERS Safety Report 12454534 (Version 1)
Quarter: 2016Q2

REPORT INFORMATION
  Report Type: Spontaneous
  Country: US (occurrence: None)
  Receive Date: 20160609
  Receipt Date: 20160609
  Transmission Date: 20160815
  Serious: No
  Sender: FDA-Public Use
  Company Number: None

PATIENT
  Age: 68 Year
  Sex: Female
  Weight: 78.47 kg

DRUGS (10)
  1. METOPROLOL. [Concomitant]
     Active Substance: METOPROLOL
  2. CALCIUM [Concomitant]
     Active Substance: CALCIUM
  3. CHLORHEXIDINE XTTRIUM LABS [Suspect]
     Active Substance: CHLORHEXIDINE
     Indication: INFECTION PROPHYLAXIS
     Dosage: ORAL RINSE
     Dates: start: 20160407, end: 20160421
  4. MAGNESIUM [Concomitant]
     Active Substance: MAGNESIUM
  5. GLUCOSAMINE [Concomitant]
     Active Substance: GLUCOSAMINE
  6. COENZYME Q10 [Concomitant]
     Active Substance: UBIDECARENONE
  7. DOXEPIN [Concomitant]
     Active Substance: DOXEPIN
  8. VITAMIN D [Concomitant]
     Active Substance: CHOLECALCIFEROL
  9. SIMVASTATIN. [Concomitant]
     Active Substance: SIMVASTATIN
  10. VITAMIN C [Concomitant]
     Active Substance: ASCORBIC ACID

REACTIONS (2)
  - Dysgeusia [None]
  - Dry mouth [None]

NARRATIVE: CASE EVENT DATE: 20160407
